FAERS Safety Report 4581798-9 (Version None)
Quarter: 2005Q1

REPORT INFORMATION
  Report Type: 
  Country: None (occurrence: None)
  Receive Date: 20050214
  Receipt Date: 20040304
  Transmission Date: 20050727
  Serious: No
  Sender: FDA-Public Use
  Company Number: US-GLAXOSMITHKLINE-A0501407A

PATIENT

DRUGS (2)
  1. LAMICTAL [Suspect]
  2. VALPROATE [Concomitant]

REACTIONS (1)
  - ORAL MUCOSAL BLISTERING [None]
